FAERS Safety Report 10172218 (Version 1)
Quarter: 2014Q2

REPORT INFORMATION
  Report Type: Spontaneous
  Country: FR (occurrence: FR)
  Receive Date: 20140515
  Receipt Date: 20140515
  Transmission Date: 20141212
  Serious: Yes (Other)
  Sender: FDA-Public Use
  Company Number: FR-AMGEN INC.-FRASP2014035731

PATIENT
  Age: 45 Year
  Sex: Male

DRUGS (7)
  1. ENBREL [Suspect]
     Indication: PRODUCT USED FOR UNKNOWN INDICATION
     Dosage: UNK
     Route: 065
     Dates: start: 2011
  2. HUMIRA [Suspect]
     Indication: PRODUCT USED FOR UNKNOWN INDICATION
     Dosage: 40 MG, UNK
     Route: 058
     Dates: end: 201403
  3. BIPROFENID [Concomitant]
     Dosage: UNK UNK, UNK
  4. CARTREX [Concomitant]
     Dosage: UNK UNK, UNK
  5. DOLIPRANE [Concomitant]
     Dosage: UNK UNK, UNK
  6. VENTOLINE                          /00139501/ [Concomitant]
     Dosage: UNK UNK, UNK
  7. SPASFON                            /00765801/ [Concomitant]
     Dosage: UNK UNK, UNK

REACTIONS (3)
  - Depression [Not Recovered/Not Resolved]
  - Anxiety disorder [Unknown]
  - Psychiatric symptom [Recovering/Resolving]
